FAERS Safety Report 8773659 (Version 1)
Quarter: 2012Q4

REPORT INFORMATION
  Report Type: 
  Country: PR (occurrence: PR)
  Receive Date: 20120907
  Receipt Date: 20120907
  Transmission Date: 20130627
  Serious: No
  Sender: FDA-Public Use
  Company Number: PR-BAYER-2012-090645

PATIENT
  Age: 72 Year
  Sex: Female
  Weight: 71.66 kg

DRUGS (1)
  1. ULTRAVIST [Suspect]
     Indication: COMPUTERISED TOMOGRAM ABDOMEN
     Dosage: 100 ml, ONCE
     Route: 042
     Dates: start: 20120816, end: 20120816

REACTIONS (2)
  - Rash erythematous [Recovered/Resolved]
  - Urticaria [Recovered/Resolved]
